FAERS Safety Report 12257724 (Version 2)
Quarter: 2016Q2

REPORT INFORMATION
  Report Type: Spontaneous
  Country: US (occurrence: US)
  Receive Date: 20160412
  Receipt Date: 20160504
  Transmission Date: 20160815
  Serious: No
  Sender: FDA-Public Use
  Company Number: US-PFIZER INC-2016184529

PATIENT
  Age: 68 Year
  Sex: Female
  Weight: 68.27 kg

DRUGS (1)
  1. OXYBUTYNIN [Suspect]
     Active Substance: OXYBUTYNIN
     Indication: URINARY INCONTINENCE
     Dosage: 5 MG, 1X/DAY [1 TAB BY MOUTH A DAY]
     Route: 048

REACTIONS (1)
  - No adverse event [Not Recovered/Not Resolved]
